FAERS Safety Report 4318836-4 (Version None)
Quarter: 2004Q1

REPORT INFORMATION
  Report Type: 
  Country: None (occurrence: None)
  Receive Date: 20040317
  Receipt Date: 20040317
  Transmission Date: 20041129
  Serious: No
  Sender: FDA-Public Use
  Company Number: None

PATIENT
  Age: 55 Year
  Sex: Female
  Weight: 117 kg

DRUGS (3)
  1. VERSED [Suspect]
     Indication: SEDATION
     Dosage: 6 MG IV ONE TIME USE
     Route: 042
     Dates: start: 20040310
  2. DEMEROL [Suspect]
     Indication: PAIN
     Dosage: 50 MG IV ONE TIME USE
     Route: 042
     Dates: start: 20040310
  3. DEMEROL [Suspect]
     Indication: SEDATION
     Dosage: 50 MG IV ONE TIME USE
     Route: 042
     Dates: start: 20040310

REACTIONS (3)
  - INJECTION SITE RASH [None]
  - PALLOR [None]
  - RASH MACULAR [None]
